FAERS Safety Report 5458752-8 (Version None)
Quarter: 2007Q3

REPORT INFORMATION
  Report Type: 
  Country: None (occurrence: None)
  Receive Date: 20070919
  Receipt Date: 20070425
  Transmission Date: 20080115
  Serious: No
  Sender: FDA-Public Use
  Company Number: US-ASTRAZENECA-2007UW08192

PATIENT
  Age: 61 Year
  Sex: Female
  Weight: 64.9 kg

DRUGS (3)
  1. SEROQUEL [Suspect]
     Indication: DEPRESSION
     Dosage: 25 MG AM; 25 MG PM; 100 MG HS
     Route: 048
     Dates: start: 20070420
  2. LORTAB [Concomitant]
  3. XANAX [Concomitant]

REACTIONS (2)
  - FEELING ABNORMAL [None]
  - GAIT DISTURBANCE [None]
